FAERS Safety Report 16393572 (Version 3)
Quarter: 2024Q1

REPORT INFORMATION
  Report Type: Spontaneous
  Country: FR (occurrence: FR)
  Receive Date: 20190605
  Receipt Date: 20240314
  Transmission Date: 20240410
  Serious: Yes (Life-Threatening, Hospitalization, Other)
  Sender: FDA-Public Use
  Company Number: None

PATIENT
  Age: 83 Year
  Sex: Female

DRUGS (14)
  1. METHYLPREDNISOLONE [Suspect]
     Active Substance: METHYLPREDNISOLONE
     Indication: B-cell lymphoma
     Dosage: 40 MG, UNK
     Dates: start: 201307
  2. METHYLPREDNISOLONE [Suspect]
     Active Substance: METHYLPREDNISOLONE
     Indication: Non-Hodgkin^s lymphoma
  3. CEFUROXIME SODIUM [Suspect]
     Active Substance: CEFUROXIME SODIUM
     Indication: Pyrexia
     Dosage: 500 MG, UNK
     Route: 065
     Dates: start: 20130818
  4. CIPROFLOXACIN [Suspect]
     Active Substance: CIPROFLOXACIN
     Indication: Pyrexia
     Dosage: 500 MG, 1X/DAY
     Route: 048
     Dates: start: 20130818, end: 20130819
  5. MOTILIUM [Suspect]
     Active Substance: DOMPERIDONE
     Dosage: 500 MG, 1X/DAY
     Route: 065
     Dates: start: 20130814, end: 20130815
  6. MABTHERA [Suspect]
     Active Substance: RITUXIMAB
     Indication: B-cell lymphoma
     Dosage: 375 MG/M2, 1X/DAY
     Route: 042
     Dates: start: 20130703, end: 20130731
  7. MABTHERA [Suspect]
     Active Substance: RITUXIMAB
     Indication: Non-Hodgkin^s lymphoma
     Dosage: 375 MG/M2, 1X/DAY
     Route: 042
     Dates: start: 20130731, end: 20130731
  8. BACTRIM [Suspect]
     Active Substance: SULFAMETHOXAZOLE\TRIMETHOPRIM
     Dosage: 1 DF (0.4286), THRICE WEEKLY
     Route: 048
     Dates: start: 20130704, end: 20130819
  9. BENDAMUSTINE HYDROCHLORIDE [Suspect]
     Active Substance: BENDAMUSTINE HYDROCHLORIDE
     Indication: B-cell lymphoma
     Dosage: 90 MG/M2, CYCLIC (2 IN 1 MONTH) (POWDER)
     Route: 042
     Dates: start: 20130703, end: 20130801
  10. BENDAMUSTINE HYDROCHLORIDE [Suspect]
     Active Substance: BENDAMUSTINE HYDROCHLORIDE
     Indication: Non-Hodgkin^s lymphoma
     Dosage: 90 MG/M2, CYCLIC (2 IN 1 MONTH) (POWDER)
     Route: 042
     Dates: start: 20130731, end: 20130801
  11. AERIUS (DESLORATADINE) [Concomitant]
     Active Substance: DESLORATADINE
     Indication: Face oedema
     Dosage: UNK
     Route: 065
     Dates: start: 20130802
  12. ATARAX [Concomitant]
     Active Substance: HYDROXYZINE HYDROCHLORIDE
     Dosage: 50 MG, UNK
     Route: 065
  13. FUROSEMIDE [Concomitant]
     Active Substance: FUROSEMIDE
     Dosage: UNK
     Route: 065
     Dates: start: 20130801
  14. TAGAMET [Concomitant]
     Active Substance: CIMETIDINE
     Dosage: 800 MG, UNK
     Route: 065

REACTIONS (7)
  - Toxic skin eruption [Recovered/Resolved]
  - Leukopenia [Unknown]
  - Agranulocytosis [Recovered/Resolved]
  - Rash maculo-papular [Unknown]
  - Febrile neutropenia [Recovering/Resolving]
  - Pancytopenia [Recovering/Resolving]
  - Prescribed underdose [Unknown]

NARRATIVE: CASE EVENT DATE: 20130703
